FAERS Safety Report 18262846 (Version 1)
Quarter: 2020Q3

REPORT INFORMATION
  Report Type: Spontaneous
  Country: US (occurrence: US)
  Receive Date: 20200914
  Receipt Date: 20200914
  Transmission Date: 20201103
  Serious: Yes (Death)
  Sender: FDA-Public Use
  Company Number: None

PATIENT
  Age: 81 Year
  Sex: Male
  Weight: 80.7 kg

DRUGS (22)
  1. PROTONIX 40 MG IV Q12H [Concomitant]
     Dates: start: 20200904, end: 20200909
  2. MIRALAX 17G BID [Concomitant]
     Dates: start: 20200907, end: 20200909
  3. NOREPINEPHRINE CONTINUOUS INFUSION [Concomitant]
     Dates: start: 20200902, end: 20200909
  4. ALBUTEROL HFA 2 PUFF INHALED 4X/DAY [Concomitant]
     Dates: start: 20200825, end: 20200909
  5. DOCUSATE 50 MG PO BID [Concomitant]
     Dates: start: 20200830, end: 20200909
  6. HEPARIN 5000 UNITS SUBQ Q8H [Concomitant]
     Dates: start: 20200907, end: 20200909
  7. LIDOCAINE 4% TOPICAL PATCH DAILY [Concomitant]
     Dates: start: 20200827, end: 20200909
  8. CONTINUOUS INFUSION VASOPRESSIN [Concomitant]
     Dates: start: 20200908, end: 20200909
  9. CRRT BAG [Concomitant]
     Dates: start: 20200908, end: 20200909
  10. FENTANYL CONTINUOUS INFUSION [Concomitant]
     Active Substance: FENTANYL
     Dates: start: 20200827, end: 20200909
  11. PYRIDOSTIGMINE 120 MG PO 3X/DAY [Concomitant]
     Dates: start: 20200820, end: 20200909
  12. CALCIUM GLUCONATE 1G IV X1 [Concomitant]
     Dates: start: 20200909
  13. SODIUM BICARB 650 MG BID [Concomitant]
     Dates: start: 20200907, end: 20200909
  14. INHALED FLOLAN [Concomitant]
     Dates: start: 20200908, end: 20200909
  15. REMDESIVIR. [Suspect]
     Active Substance: REMDESIVIR
     Indication: COVID-19
     Dates: start: 20200820, end: 20200824
  16. AMIODARONE 200 MG PO DAILY [Concomitant]
     Dates: start: 20200829, end: 20200909
  17. CONTINUOUS INFUSION ROCURONIUM [Concomitant]
     Dates: start: 20200908, end: 20200909
  18. LEVOTHYROXINE 100 MCG DAILY [Concomitant]
     Dates: start: 20200821, end: 20200909
  19. MIDAZOLAM CONTINUOUS INFUSION [Concomitant]
     Dates: start: 20200827, end: 20200909
  20. DULERA 2 PUFF BID [Concomitant]
     Dates: start: 20200820, end: 20200909
  21. LOKELMA 10 G PO DAILY [Concomitant]
     Dates: start: 20200907, end: 20200909
  22. ARTIFICIAL TEARS Q4H [Concomitant]
     Dates: start: 20200831, end: 20200909

REACTIONS (1)
  - Death [None]

NARRATIVE: CASE EVENT DATE: 20200909
